FAERS Safety Report 16196177 (Version 1)
Quarter: 2019Q2

REPORT INFORMATION
  Report Type: Spontaneous
  Country: IT (occurrence: IT)
  Receive Date: 20190415
  Receipt Date: 20190415
  Transmission Date: 20190711
  Serious: Yes (Hospitalization)
  Sender: FDA-Public Use
  Company Number: IT-SUN PHARMACEUTICAL INDUSTRIES LTD-2019RR-205288

PATIENT
  Age: 70 Year
  Sex: Male

DRUGS (8)
  1. LANSOX 15 MG CAPSULE RIGIDE [Concomitant]
     Indication: PRODUCT USED FOR UNKNOWN INDICATION
     Dosage: ()
     Route: 048
  2. LUVION (CANRENONE) [Suspect]
     Active Substance: CANRENONE
     Indication: HYPERTENSION
     Dosage: 0.5 DOSAGE FORM, DAILY
     Route: 048
     Dates: start: 20180101, end: 20190119
  3. FOLINA [CALCIUM FOLINATE] [Concomitant]
     Active Substance: LEUCOVORIN CALCIUM
     Indication: PRODUCT USED FOR UNKNOWN INDICATION
     Dosage: ()
     Route: 048
  4. ALMARYTM 100 MG COMPRESSE [Suspect]
     Active Substance: FLECAINIDE ACETATE
     Indication: ATRIAL FIBRILLATION
     Dosage: 2 DOSAGE FORM, DAILY
     Route: 048
     Dates: start: 20180101, end: 20190119
  5. ALIFLUS DISKUS 50 MICROGRAMMI/100 MICROGRAMMI/DOSE DI POLVERE PER INAL [Concomitant]
     Indication: PRODUCT USED FOR UNKNOWN INDICATION
     Dosage: ()
     Route: 055
  6. TAMSULOSIN [Suspect]
     Active Substance: TAMSULOSIN
     Indication: BENIGN PROSTATIC HYPERPLASIA
     Dosage: 0.4 MILLIGRAM, DAILY
     Route: 048
     Dates: start: 20180101, end: 20190119
  7. SPIRIVA RESPIMAT [Concomitant]
     Active Substance: TIOTROPIUM BROMIDE
     Indication: PRODUCT USED FOR UNKNOWN INDICATION
     Dosage: ()
     Route: 055
  8. CARDICOR 3,75 MG COMPRESSE RIVESTITE CON FILM [Suspect]
     Active Substance: BISOPROLOL
     Indication: HYPERTENSION
     Dosage: 0.5 DOSAGE FORM, DAILY
     Route: 048
     Dates: start: 20180101, end: 20190119

REACTIONS (1)
  - Loss of consciousness [Unknown]

NARRATIVE: CASE EVENT DATE: 20190119
